FAERS Safety Report 7993019-5 (Version None)
Quarter: 2011Q4

REPORT INFORMATION
  Report Type: 
  Country: None (occurrence: None)
  Receive Date: 20111219
  Receipt Date: 20111014
  Transmission Date: 20120403
  Serious: Yes (Hospitalization)
  Sender: FDA-Public Use
  Company Number: US-ASTRAZENECA-2011SE62005

PATIENT
  Age: 91 Year
  Sex: Male

DRUGS (5)
  1. GLYBURIDE [Concomitant]
  2. CRESTOR [Suspect]
     Route: 048
  3. THIAZIDE [Concomitant]
  4. ACTOS [Concomitant]
  5. JANUVIA [Concomitant]

REACTIONS (2)
  - RHABDOMYOLYSIS [None]
  - ASTHENIA [None]
